FAERS Safety Report 6044674-0 (Version None)
Quarter: 2009Q1

REPORT INFORMATION
  Report Type: 
  Country: None (occurrence: None)
  Receive Date: 20090120
  Receipt Date: 20090105
  Transmission Date: 20090719
  Serious: Yes (Other)
  Sender: FDA-Public Use
  Company Number: US-PFIZER INC-2009151587

PATIENT
  Sex: Male
  Weight: 90.718 kg

DRUGS (3)
  1. CHANTIX [Suspect]
     Indication: SMOKING CESSATION THERAPY
     Dosage: UNK
     Dates: start: 20080101
  2. LISINOPRIL [Suspect]
     Indication: HYPERTENSION
     Dosage: UNK
     Dates: start: 20081001
  3. UNSPECIFIED CHOLESTEROL MEDICATION [Concomitant]

REACTIONS (2)
  - HALLUCINATION, VISUAL [None]
  - LOSS OF CONSCIOUSNESS [None]
